FAERS Safety Report 9733779 (Version 4)
Quarter: 2014Q1

REPORT INFORMATION
  Report Type: Spontaneous
  Country: KR (occurrence: KR)
  Receive Date: 20131205
  Receipt Date: 20140212
  Transmission Date: 20141002
  Serious: Yes (Hospitalization, Other)
  Sender: FDA-Public Use
  Company Number: KR-B.I. PHARMACEUTICALS,INC./RIDGEFIELD-2013-BI-40733YA

PATIENT
  Age: 57 Year
  Sex: Male
  Weight: 89 kg

DRUGS (8)
  1. TAMSULOSINA [Suspect]
     Indication: BENIGN PROSTATIC HYPERPLASIA
     Dosage: 0.2 MG
     Route: 048
     Dates: start: 20131021
  2. DUTASTERIDE [Suspect]
     Indication: BENIGN PROSTATIC HYPERPLASIA
     Dosage: 0.5 MG
     Route: 048
     Dates: start: 20131021
  3. DILATREND (CARVEDILOL) [Concomitant]
     Dates: start: 20100415
  4. LIPILOU [Concomitant]
     Dates: start: 20130730
  5. SOLONDO (PREDNISOLONE) [Concomitant]
     Dates: start: 20040803
  6. OMED (OMEPRAZOLE) [Concomitant]
     Dates: start: 20130903
  7. CIPOL-N (CICLOSPORIN) [Concomitant]
     Dates: start: 20040803
  8. STILLEN (EUPATILIN) [Concomitant]
     Dates: start: 20111228

REACTIONS (1)
  - Nephritic syndrome [Recovered/Resolved]
